FAERS Safety Report 16085595 (Version 1)
Quarter: 2019Q1

REPORT INFORMATION
  Report Type: Spontaneous
  Country: US (occurrence: US)
  Receive Date: 20190318
  Receipt Date: 20190318
  Transmission Date: 20190418
  Serious: No
  Sender: FDA-Public Use
  Company Number: US-PFIZER INC-2019110560

PATIENT
  Age: 45 Year
  Sex: Female

DRUGS (1)
  1. XELJANZ XR [Suspect]
     Active Substance: TOFACITINIB CITRATE
     Dosage: 11 MG, UNK
     Dates: start: 201902

REACTIONS (5)
  - Sneezing [Unknown]
  - Feeling abnormal [Unknown]
  - Clumsiness [Unknown]
  - Dizziness [Unknown]
  - Pyrexia [Unknown]

NARRATIVE: CASE EVENT DATE: 20190305
